FAERS Safety Report 9295707 (Version 3)
Quarter: 2013Q2

REPORT INFORMATION
  Report Type: Spontaneous
  Country: US (occurrence: US)
  Receive Date: 20130517
  Receipt Date: 20130621
  Transmission Date: 20140414
  Serious: Yes (Other)
  Sender: FDA-Public Use
  Company Number: US-SANOFI-AVENTIS-2013SA049614

PATIENT
  Age: 54 Year
  Sex: Female
  Weight: 64 kg

DRUGS (6)
  1. AUBAGIO [Suspect]
     Indication: MULTIPLE SCLEROSIS
     Route: 048
     Dates: start: 20121223, end: 20130610
  2. AUBAGIO [Suspect]
     Indication: MULTIPLE SCLEROSIS
  3. FOLIC ACID [Concomitant]
  4. BENICAR [Concomitant]
  5. VITAMIN D [Concomitant]
  6. VITAMIN B1 [Concomitant]

REACTIONS (4)
  - Wrist fracture [Unknown]
  - Haemorrhage [Unknown]
  - Fall [Unknown]
  - Drug dose omission [Unknown]
